FAERS Safety Report 5756894-0 (Version None)
Quarter: 2008Q2

REPORT INFORMATION
  Report Type: 
  Country: None (occurrence: None)
  Receive Date: 20080603
  Receipt Date: 20080523
  Transmission Date: 20081010
  Serious: Yes (Hospitalization)
  Sender: FDA-Public Use
  Company Number: FR-BRISTOL-MYERS SQUIBB COMPANY-14210322

PATIENT
  Age: 28 Year
  Sex: Female

DRUGS (10)
  1. ENDOXAN [Suspect]
     Indication: ACUTE LYMPHOCYTIC LEUKAEMIA
     Dosage: (480MG) FROM UNKMAR08-MAR08;(DOSE UNK)ROUTE-UNK PRN FROM 02NOV07-29NOV07
     Route: 042
     Dates: start: 20080318, end: 20080318
  2. VINCRISTINE SULFATE [Suspect]
     Indication: ACUTE LYMPHOCYTIC LEUKAEMIA
     Dosage: (DOSEUNK) PRN (02NOV07:29NOV07)(17DEC07:17DEC07)(03JAN08:03JAN08)(11FEB08:14FEB08)(CONTD)
     Route: 042
     Dates: start: 20080318
  3. METHOTREXATE [Suspect]
     Indication: ACUTE LYMPHOCYTIC LEUKAEMIA
     Dosage: (DOSEUNK)PRN(02NOV07-29NOV07)(17DEC07:17DEC07)(03JAN08:03JAN08)(11FEB08:14FEB08)
     Dates: start: 20080318, end: 20080325
  4. ARACYTINE [Suspect]
     Indication: ACUTE LYMPHOCYTIC LEUKAEMIA
     Dosage: (DOSEUNK)PRN (02NOV07:29NOV07)(30NOV07:12DEC07)(21JAN08:21JAN08)
     Dates: start: 20080318, end: 20080325
  5. CERUBIDINE [Suspect]
     Indication: ACUTE LYMPHOCYTIC LEUKAEMIA
     Dosage: (DOSEUNK) PRN 02NOV07:29NOV07 CONTINUING
     Route: 042
     Dates: start: 20080318
  6. KIDROLASE [Suspect]
     Indication: ACUTE LYMPHOCYTIC LEUKAEMIA
     Dosage: (DOSEUNK) PRN (02NOV07:29NOV07)(21JAN08:21JAN08)
     Dates: start: 20080325, end: 20080325
  7. DEPO-MEDROL [Suspect]
     Indication: ACUTE LYMPHOCYTIC LEUKAEMIA
     Dosage: (DOSEUNK) PRN 02NOV07-29NOV07(CONTINUING)
     Dates: start: 20080318
  8. PREDNISONE TAB [Concomitant]
     Dates: start: 20080318
  9. ELSPAR [Concomitant]
     Dates: start: 20080318
  10. GRANOCYTE [Concomitant]
     Dates: start: 20080401

REACTIONS (1)
  - REVERSIBLE POSTERIOR LEUKOENCEPHALOPATHY SYNDROME [None]
